FAERS Safety Report 22613170 (Version 1)
Quarter: 2023Q2

REPORT INFORMATION
  Report Type: Spontaneous
  Country: US (occurrence: US)
  Receive Date: 20230618
  Receipt Date: 20230618
  Transmission Date: 20230721
  Serious: No
  Sender: FDA-Public Use
  Company Number: US-BAUSCHBL-2023BNL005034

PATIENT
  Age: 64 Year
  Sex: Female

DRUGS (2)
  1. LOTEPREDNOL ETABONATE [Suspect]
     Active Substance: LOTEPREDNOL ETABONATE
     Indication: Dry eye
     Route: 047
     Dates: start: 20230503, end: 20230503
  2. LOTEPREDNOL ETABONATE [Suspect]
     Active Substance: LOTEPREDNOL ETABONATE
     Indication: Off label use

REACTIONS (6)
  - Instillation site erythema [Recovering/Resolving]
  - Instillation site pruritus [Recovering/Resolving]
  - Instillation site lacrimation [Recovering/Resolving]
  - Instillation site warmth [Recovering/Resolving]
  - Instillation site irritation [Recovering/Resolving]
  - Off label use [Unknown]

NARRATIVE: CASE EVENT DATE: 20230504
